FAERS Safety Report 6816374-8 (Version None)
Quarter: 2010Q3

REPORT INFORMATION
  Report Type: 
  Country: None (occurrence: None)
  Receive Date: 20100705
  Receipt Date: 20100622
  Transmission Date: 20110219
  Serious: Yes (Hospitalization, Other)
  Sender: FDA-Public Use
  Company Number: PHHY2010DE05330

PATIENT
  Sex: Female

DRUGS (9)
  1. RASILEZ [Suspect]
     Dosage: 150 MG, BID
     Route: 048
     Dates: start: 20090101, end: 20100101
  2. RASILEZ [Suspect]
     Dosage: 300 MG PER DAY
     Route: 048
     Dates: start: 20100101
  3. RASILEZ [Suspect]
     Dosage: 150 MG, 3 DF/D
     Route: 048
     Dates: start: 20100423
  4. RASILEZ [Suspect]
     Dosage: UNK
  5. RASILEZ HCT [Suspect]
     Dosage: 1 DF PER DAY
     Route: 048
     Dates: start: 20100101, end: 20100101
  6. RASILEZ HCT [Suspect]
     Dosage: UNK
  7. APROVEL [Concomitant]
     Dosage: AS NEEDED ONE SINGLE DOSE
     Dates: start: 20090101
  8. CONCOR COR [Concomitant]
     Dosage: UNK
  9. DIOVAN [Concomitant]
     Dosage: UNK
     Route: 048
     Dates: start: 20100401

REACTIONS (21)
  - ATRIAL FIBRILLATION [None]
  - BLOOD PRESSURE INADEQUATELY CONTROLLED [None]
  - CONCOMITANT DISEASE AGGRAVATED [None]
  - CONSTIPATION [None]
  - DRUG INEFFECTIVE [None]
  - ERYTHEMA [None]
  - FATIGUE [None]
  - FEELING HOT [None]
  - HEADACHE [None]
  - HYPOTHYROIDISM [None]
  - INTESTINAL MASS [None]
  - NAUSEA [None]
  - PAIN IN EXTREMITY [None]
  - POST PROCEDURAL PULMONARY EMBOLISM [None]
  - POSTOPERATIVE THROMBOSIS [None]
  - PRURITUS [None]
  - PRURITUS GENERALISED [None]
  - PULMONARY EMBOLISM [None]
  - RASH [None]
  - SURGERY [None]
  - TINNITUS [None]
